FAERS Safety Report 5744209-3 (Version None)
Quarter: 2008Q2

REPORT INFORMATION
  Report Type: 
  Country: None (occurrence: None)
  Receive Date: 20080520
  Receipt Date: 20080513
  Transmission Date: 20081010
  Serious: Yes (Disabling)
  Sender: FDA-Public Use
  Company Number: GB-AVENTIS-200814503GDDC

PATIENT
  Age: 42 Year
  Sex: Female

DRUGS (1)
  1. METRONIDAZOLE HCL [Suspect]
     Route: 048
     Dates: start: 20080417, end: 20080423

REACTIONS (8)
  - CONFUSIONAL STATE [None]
  - DIZZINESS [None]
  - FLUSHING [None]
  - HEADACHE [None]
  - NAUSEA [None]
  - PRURITUS [None]
  - URINE COLOUR ABNORMAL [None]
  - VOMITING [None]
